FAERS Safety Report 6381965-8 (Version None)
Quarter: 2009Q3

REPORT INFORMATION
  Report Type: 
  Country: None (occurrence: None)
  Receive Date: 20090930
  Receipt Date: 20090923
  Transmission Date: 20100115
  Serious: Yes (Hospitalization)
  Sender: FDA-Public Use
  Company Number: US-ABBOTT-09P-163-0598893-00

PATIENT
  Sex: Female
  Weight: 52.664 kg

DRUGS (7)
  1. DEPAKOTE [Suspect]
     Indication: MENTAL DISORDER
     Route: 048
     Dates: start: 20081120, end: 20090424
  2. DIVALPROEX SODIUM [Suspect]
     Indication: MENTAL DISORDER
     Dosage: GENERIC FORM
     Route: 048
     Dates: start: 20090424, end: 20090801
  3. ZYPREXA [Suspect]
     Indication: MENTAL DISORDER
     Dosage: UNKNOWN
     Dates: start: 20081101, end: 20090801
  4. CLONAZEPAM [Concomitant]
     Indication: ANXIOLYTIC THERAPY
     Dosage: UNKNOWN
     Dates: start: 20081101
  5. LISINOPRIL [Concomitant]
     Indication: HYPERTENSION
  6. CRESTOR [Concomitant]
     Indication: BLOOD CHOLESTEROL INCREASED
  7. VITAMINS [Concomitant]
     Indication: VITAMIN SUPPLEMENTATION
     Dosage: UNKNOWN

REACTIONS (5)
  - APPENDICECTOMY [None]
  - DROOLING [None]
  - GAIT DISTURBANCE [None]
  - PNEUMONIA [None]
  - TREMOR [None]
